FAERS Safety Report 8813521 (Version 1)
Quarter: 2012Q4

REPORT INFORMATION
  Report Type: 
  Country: US (occurrence: US)
  Receive Date: 20120927
  Receipt Date: 20120927
  Transmission Date: 20130627
  Serious: No
  Sender: FDA-Public Use
  Company Number: US-AMGEN-USASP2012038998

PATIENT
  Age: 61 Year
  Sex: Male
  Weight: 79.37 kg

DRUGS (5)
  1. PROLIA [Suspect]
     Indication: OSTEOPOROSIS
     Dosage: 60 mg, q6mo
     Route: 058
     Dates: start: 20111129, end: 20120522
  2. CRESTOR [Concomitant]
     Indication: HYPERCHOLESTEROLAEMIA
     Dosage: 20 mg, qhs
     Route: 048
     Dates: start: 2008
  3. TEMAZEPAM [Concomitant]
     Indication: INSOMNIA
     Dosage: 30 mg, qhs
     Route: 048
  4. SINGULAIR [Concomitant]
     Indication: RHINITIS
     Dosage: 10 mg, qhs
     Route: 048
  5. NEXIUM [Concomitant]
     Indication: GASTROOESOPHAGEAL REFLUX DISEASE
     Dosage: 40 mg, qd
     Route: 048

REACTIONS (8)
  - Nausea [Recovered/Resolved]
  - Vomiting [Recovered/Resolved]
  - Diarrhoea [Recovered/Resolved]
  - Abdominal pain [Recovered/Resolved]
  - Contusion [Recovered/Resolved]
  - Malaise [Unknown]
  - Abdominal distension [Unknown]
  - Gastrointestinal sounds abnormal [Unknown]
